FAERS Safety Report 8846203 (Version 1)
Quarter: 2012Q4

REPORT INFORMATION
  Report Type: Report from Study
  Country: PT (occurrence: PT)
  Receive Date: 20121017
  Receipt Date: 20121017
  Transmission Date: 20130627
  Serious: Yes (Other)
  Sender: FDA-Public Use
  Company Number: PT-GILEAD-2012-0062944

PATIENT
  Sex: Female

DRUGS (4)
  1. EMTRICITABINE/TENOFOVIR DISOPROXIL FUMARATE [Suspect]
     Indication: HIV INFECTION
     Dosage: UNK
  2. RITONAVIR [Concomitant]
     Indication: HIV INFECTION
     Dosage: UNK
  3. ETRAVIRINE [Concomitant]
     Indication: HIV INFECTION
     Dosage: UNK
  4. DARUNAVIR [Concomitant]
     Indication: HIV INFECTION
     Dosage: UNK

REACTIONS (1)
  - Abortion spontaneous [Unknown]
